FAERS Safety Report 6016765-1 (Version None)
Quarter: 2008Q4

REPORT INFORMATION
  Report Type: 
  Country: None (occurrence: None)
  Receive Date: 20081218
  Receipt Date: 20081208
  Transmission Date: 20090506
  Serious: Yes (Hospitalization)
  Sender: FDA-Public Use
  Company Number: SPV1-2008-02698

PATIENT
  Age: 11 Year
  Sex: Male
  Weight: 56.2 kg

DRUGS (3)
  1. ADDERALL XR 10 [Suspect]
     Indication: ATTENTION DEFICIT/HYPERACTIVITY DISORDER
     Dosage: 1X/DAY:QD, ORAL, 2X/DAY:BID, ORAL, MG, 1X/DAY:QD, ORAL
     Route: 048
     Dates: start: 20040101, end: 20040101
  2. ADDERALL XR 10 [Suspect]
     Indication: ATTENTION DEFICIT/HYPERACTIVITY DISORDER
     Dosage: 1X/DAY:QD, ORAL, 2X/DAY:BID, ORAL, MG, 1X/DAY:QD, ORAL
     Route: 048
     Dates: end: 20050101
  3. ADDERALL XR 10 [Suspect]
     Indication: ATTENTION DEFICIT/HYPERACTIVITY DISORDER
     Dosage: 1X/DAY:QD, ORAL, 2X/DAY:BID, ORAL, MG, 1X/DAY:QD, ORAL
     Route: 048
     Dates: start: 20040101

REACTIONS (3)
  - ATTENTION DEFICIT/HYPERACTIVITY DISORDER [None]
  - CONDITION AGGRAVATED [None]
  - DRUG INEFFECTIVE [None]
